FAERS Safety Report 22316073 (Version 1)
Quarter: 2023Q2

REPORT INFORMATION
  Report Type: Spontaneous
  Country: US (occurrence: US)
  Receive Date: 20230512
  Receipt Date: 20230512
  Transmission Date: 20230722
  Serious: No
  Sender: FDA-Public Use
  Company Number: US-GALDERMA-US2023006782

PATIENT

DRUGS (8)
  1. PROACTIV MD ADAPALENE ACNE TREATMENT [Suspect]
     Active Substance: ADAPALENE
     Indication: Acne
     Dosage: 1 DOSAGE FORM, QD, AT EVENING
     Route: 061
     Dates: start: 202301
  2. PROACTIV CLEAR SKIN SPF 30 [Concomitant]
     Active Substance: AVOBENZONE\OCTISALATE\OCTOCRYLENE
     Indication: Acne
     Dosage: 1 DOSAGE FORM, BID, USED DAILY DAY AND NIGHT
     Route: 061
     Dates: start: 202301
  3. Proactiv MD Ultra Gentle Cleanser [Concomitant]
     Indication: Acne
     Dosage: 1 DOSAGE FORM, BID, USED DAILY DAY AND NIGHT
     Route: 061
     Dates: start: 202301
  4. Proactiv MD Ultra Hydrating Moisturizer [Concomitant]
     Indication: Acne
     Dosage: 1 DOSAGE FORM, BID, USED DAILY DAY AND NIGHT
     Route: 061
     Dates: start: 202301
  5. Proactiv Post Acne Scar Gel [Concomitant]
     Indication: Acne
     Dosage: 1 DOSAGE FORM, BID, USED DAILY DAY AND NIGHT
     Route: 061
     Dates: start: 202301
  6. Proactiv Post Acne Dark Mark Relief [Concomitant]
     Indication: Acne
     Dosage: 1 DOSAGE FORM, BID, USED DAILY DAY AND NIGHT
     Route: 061
     Dates: start: 202301
  7. PROACTIV ACNE BODY WASH [Concomitant]
     Active Substance: SALICYLIC ACID
     Indication: Acne
     Dosage: 1 DOSAGE FORM, BID, USED DAILY DAY AND NIGHT
     Route: 061
     Dates: start: 202301
  8. PROACTIV BLACKHEAD DISSOLVING [Concomitant]
     Active Substance: SALICYLIC ACID
     Indication: Acne
     Dosage: 1 DOSAGE FORM, BID, USED DAILY DAY AND NIGHT
     Route: 061
     Dates: start: 202301

REACTIONS (1)
  - Acne [Unknown]

NARRATIVE: CASE EVENT DATE: 20230101
